FAERS Safety Report 20980159 (Version 1)
Quarter: 2022Q2

REPORT INFORMATION
  Report Type: Spontaneous
  Country: JP (occurrence: JP)
  Receive Date: 20220620
  Receipt Date: 20220620
  Transmission Date: 20220720
  Serious: Yes (Other)
  Sender: FDA-Public Use
  Company Number: JP-SUN PHARMACEUTICAL INDUSTRIES LTD-2022RR-341347

PATIENT
  Age: 77 Year
  Sex: Male

DRUGS (6)
  1. OXALIPLATIN [Suspect]
     Active Substance: OXALIPLATIN
     Indication: Colorectal cancer
     Dosage: 85 MILLIGRAM/SQ. METER ON DAY 1
     Route: 065
  2. LEUCOVORIN CALCIUM [Suspect]
     Active Substance: LEUCOVORIN CALCIUM
     Indication: Colorectal cancer
     Dosage: 200 MILLIGRAM/SQ. METER OVER 40 H
     Route: 065
  3. IRINOTECAN [Suspect]
     Active Substance: IRINOTECAN
     Indication: Colorectal cancer
     Dosage: 60 MILLIGRAM/SQ. METER ON DAY 1, 8, 15
     Route: 065
  4. CISPLATIN [Suspect]
     Active Substance: CISPLATIN
     Indication: Colorectal cancer
     Dosage: 60 MILLIGRAM/SQ. METER, DAILY (DAY 1)
     Route: 065
  5. FLUOROURACIL [Suspect]
     Active Substance: FLUOROURACIL
     Indication: Colorectal cancer
     Dosage: 400 MILLIGRAM/SQ. METER, OVER 40 H
     Route: 065
  6. FLUOROURACIL [Suspect]
     Active Substance: FLUOROURACIL
     Dosage: 2.4 GRAM PER SQUARE METRE OVER 40 H
     Route: 065

REACTIONS (4)
  - Malignant neoplasm progression [Unknown]
  - Febrile neutropenia [Unknown]
  - Diarrhoea [Unknown]
  - Drug ineffective [Unknown]
